FAERS Safety Report 24332611 (Version 3)
Quarter: 2024Q4

REPORT INFORMATION
  Report Type: Spontaneous
  Country: GB (occurrence: GB)
  Receive Date: 20240918
  Receipt Date: 20241031
  Transmission Date: 20250114
  Serious: Yes (Hospitalization, Other)
  Sender: MYLAN
  Company Number: GB-MYLANLABS-2024M1083508

PATIENT
  Sex: Male

DRUGS (5)
  1. CLOZARIL [Suspect]
     Active Substance: CLOZAPINE
     Indication: Schizophrenia
     Dosage: UNK
     Route: 048
     Dates: start: 20220531
  2. CLOZARIL [Suspect]
     Active Substance: CLOZAPINE
     Dosage: UNK (SLIGHTLY REDUCED DOSING)
     Route: 048
  3. CLOZARIL [Suspect]
     Active Substance: CLOZAPINE
     Dosage: UNK (INCREASED TO NORMAL REGIME)
     Route: 048
  4. CLOZARIL [Suspect]
     Active Substance: CLOZAPINE
     Dosage: 100 MILLIGRAM, QD (ONCE IN MORNING)
     Route: 048
  5. CLOZARIL [Suspect]
     Active Substance: CLOZAPINE
     Dosage: 350 MILLIGRAM, PM (ONCE AT NIGHT)
     Route: 048

REACTIONS (2)
  - Mental impairment [Unknown]
  - Therapy interrupted [Unknown]
